FAERS Safety Report 9670142 (Version 4)
Quarter: 2014Q1

REPORT INFORMATION
  Report Type: Spontaneous
  Country: US (occurrence: US)
  Receive Date: 20131105
  Receipt Date: 20140121
  Transmission Date: 20141002
  Serious: Yes (Hospitalization)
  Sender: FDA-Public Use
  Company Number: US-PFIZER INC-2013311786

PATIENT
  Age: 65 Year
  Sex: Male

DRUGS (14)
  1. SUTENT [Suspect]
     Indication: RENAL CELL CARCINOMA
     Dosage: 12.5 MG, UNK
     Dates: start: 20130926
  2. SUTENT [Suspect]
     Dosage: 50 MG, 1X/DAY
     Route: 048
  3. ACETAMINOPHEN [Concomitant]
     Dosage: UNK
  4. ASPIRIN [Concomitant]
     Dosage: UNK
  5. ATENOLOL [Concomitant]
     Dosage: UNK
  6. ATORVASTATIN CALCIUM [Concomitant]
     Dosage: UNK
  7. CETIRIZINE HYDROCHLORIDE [Concomitant]
     Dosage: UNK
  8. CO-Q-10 [Concomitant]
     Dosage: UNK
  9. FISH OIL [Concomitant]
     Dosage: UNK
  10. LISINOPRIL [Concomitant]
     Dosage: UNK
  11. LORAZEPAM [Concomitant]
     Dosage: UNK
  12. OMEPRAZOLE [Concomitant]
     Dosage: UNK
  13. RAPAFLO [Concomitant]
     Dosage: UNK
  14. DECADRON [Concomitant]
     Indication: BRAIN OEDEMA
     Dosage: 4 MG, UNK

REACTIONS (4)
  - Dehydration [Unknown]
  - Diarrhoea [Recovered/Resolved]
  - Disease progression [Unknown]
  - Metastatic renal cell carcinoma [Unknown]
